FAERS Safety Report 8017852 (Version 2)
Quarter: 2013Q3

REPORT INFORMATION
  Report Type: Spontaneous
  Country: US (occurrence: ES)
  Receive Date: 20110630
  Receipt Date: 20130902
  Transmission Date: 20140515
  Serious: Yes (Hospitalization)
  Sender: FDA-Public Use
  Company Number: ES-PFIZER INC-2011142502

PATIENT
  Age: 59 Year
  Sex: Male

DRUGS (3)
  1. PREGABALIN [Suspect]
     Indication: NEURALGIA
     Dosage: 25 MG, 2X/DAY
  2. ALLOPURINOL [Concomitant]
     Indication: GOUT
  3. LEVOFLOXACIN [Concomitant]
     Dosage: 500 MG, DAILY
     Route: 048

REACTIONS (2)
  - Hepatotoxicity [Recovered/Resolved]
  - Oedema peripheral [Recovering/Resolving]
